FAERS Safety Report 17251918 (Version 1)
Quarter: 2020Q1

REPORT INFORMATION
  Report Type: Spontaneous
  Country: US (occurrence: US)
  Receive Date: 20200109
  Receipt Date: 20200109
  Transmission Date: 20200409
  Serious: Yes (Death, Hospitalization)
  Sender: FDA-Public Use
  Company Number: US-PFIZER INC-2020009818

PATIENT
  Age: 75 Year
  Sex: Male
  Weight: 104.7 kg

DRUGS (1)
  1. XALKORI [Suspect]
     Active Substance: CRIZOTINIB
     Indication: METASTATIC NEOPLASM
     Dosage: 250 MG, 2X/DAY
     Route: 048
     Dates: start: 201907

REACTIONS (6)
  - Septic shock [Fatal]
  - Hyperkalaemia [Fatal]
  - Hypertension [Fatal]
  - Hyponatraemia [Fatal]
  - Acute kidney injury [Fatal]
  - Respiratory failure [Fatal]
